FAERS Safety Report 8074559-X (Version None)
Quarter: 2012Q1

REPORT INFORMATION
  Report Type: 
  Country: None (occurrence: None)
  Receive Date: 20120126
  Receipt Date: 20120116
  Transmission Date: 20120608
  Serious: Yes (Death, Hospitalization)
  Sender: FDA-Public Use
  Company Number: US-BAXTER-2011BH024210

PATIENT
  Age: 78 Year
  Sex: Male

DRUGS (3)
  1. DIANEAL [Suspect]
     Indication: PERITONEAL DIALYSIS
     Route: 033
     Dates: start: 20111001, end: 20120114
  2. DIANEAL [Suspect]
     Indication: PERITONEAL DIALYSIS
     Route: 033
     Dates: end: 20110601
  3. DIANEAL [Suspect]
     Route: 033
     Dates: end: 20110601

REACTIONS (6)
  - SEPSIS [None]
  - DIABETES MELLITUS MALNUTRITION-RELATED [None]
  - WOUND INFECTION [None]
  - BACTERAEMIA [None]
  - IMPAIRED HEALING [None]
  - PNEUMONIA [None]
